FAERS Safety Report 5820552-4 (Version None)
Quarter: 2008Q3

REPORT INFORMATION
  Report Type: 
  Country: None (occurrence: None)
  Receive Date: 20080724
  Receipt Date: 20071023
  Transmission Date: 20090109
  Serious: No
  Sender: FDA-Public Use
  Company Number: A0689248A

PATIENT
  Age: 62 Year
  Sex: Male

DRUGS (6)
  1. AVANDIA [Suspect]
     Dosage: 4MG PER DAY
     Route: 048
     Dates: end: 20070824
  2. LOVASTATIN [Concomitant]
  3. GLYBURIDE [Concomitant]
  4. NYSTATIN [Concomitant]
  5. ASPIRIN [Concomitant]
  6. VITAMIN [Concomitant]

REACTIONS (6)
  - COLD SWEAT [None]
  - DYSPNOEA [None]
  - HYPERHIDROSIS [None]
  - MUSCULAR WEAKNESS [None]
  - NASOPHARYNGITIS [None]
  - PULSE ABSENT [None]
